FAERS Safety Report 10381678 (Version 2)
Quarter: 2014Q4

REPORT INFORMATION
  Report Type: Report from Study
  Country: US (occurrence: US)
  Receive Date: 20140813
  Receipt Date: 20141008
  Transmission Date: 20150528
  Serious: Yes (Other)
  Sender: FDA-Public Use
  Company Number: US-SA-2014SA107610

PATIENT
  Age: 57 Year
  Sex: Male

DRUGS (4)
  1. SOLOSTAR [Concomitant]
     Active Substance: DEVICE
     Dates: start: 2014
  2. LANTUS SOLOSTAR [Suspect]
     Active Substance: INSULIN GLARGINE
     Indication: TYPE 2 DIABETES MELLITUS
     Dosage: 12 UNIT AT BEDTIME DOSE:12 UNIT(S)
     Route: 058
     Dates: end: 2014
  3. SOLOSTAR [Concomitant]
     Active Substance: DEVICE
     Dates: end: 2014
  4. LANTUS SOLOSTAR [Suspect]
     Active Substance: INSULIN GLARGINE
     Indication: TYPE 2 DIABETES MELLITUS
     Dosage: 12 UNIT AT BEDTIME DOSE:12 UNIT(S)
     Route: 058
     Dates: start: 2014

REACTIONS (4)
  - Road traffic accident [Unknown]
  - BK virus infection [Unknown]
  - Renal transplant [Unknown]
  - Pancreatic disorder [Unknown]

NARRATIVE: CASE EVENT DATE: 2013
